FAERS Safety Report 24111352 (Version 3)
Quarter: 2024Q3

REPORT INFORMATION
  Report Type: Spontaneous
  Country: US (occurrence: None)
  Receive Date: 20240718
  Receipt Date: 20240729
  Transmission Date: 20241016
  Serious: Yes (Hospitalization, Other)
  Sender: ASTRAZENECA
  Company Number: 2024A159810

PATIENT
  Age: 61 Year
  Sex: Male
  Weight: 103 kg

DRUGS (7)
  1. LISINOPRIL [Suspect]
     Active Substance: LISINOPRIL
     Indication: Hypertension
     Route: 048
     Dates: start: 20180101
  2. FARXIGA [Suspect]
     Active Substance: DAPAGLIFLOZIN PROPANEDIOL
     Indication: Diabetes mellitus
     Route: 048
     Dates: start: 20230101, end: 20240506
  3. FARXIGA [Suspect]
     Active Substance: DAPAGLIFLOZIN PROPANEDIOL
     Indication: Hypertension
     Route: 048
     Dates: start: 20230101, end: 20240506
  4. FARXIGA [Suspect]
     Active Substance: DAPAGLIFLOZIN PROPANEDIOL
     Indication: Chronic kidney disease
     Route: 048
     Dates: start: 20230101, end: 20240506
  5. FARXIGA [Suspect]
     Active Substance: DAPAGLIFLOZIN PROPANEDIOL
     Indication: Type 2 diabetes mellitus
     Route: 048
     Dates: start: 20230101, end: 20240506
  6. METFORMIN [Suspect]
     Active Substance: METFORMIN HYDROCHLORIDE
     Indication: Type 2 diabetes mellitus
     Dates: start: 20180101, end: 20240506
  7. INSULIN NOS [Concomitant]
     Active Substance: INSULIN NOS

REACTIONS (12)
  - Renal failure [Unknown]
  - Acute kidney injury [Recovered/Resolved]
  - Encephalopathy [Recovered/Resolved]
  - Blood creatinine increased [Unknown]
  - Dehydration [Unknown]
  - Condition aggravated [Unknown]
  - Device difficult to use [Unknown]
  - Hyperkalaemia [Recovered/Resolved]
  - Disorientation [Unknown]
  - Mood altered [Unknown]
  - Hyponatraemia [Recovered/Resolved]
  - Product use issue [Unknown]

NARRATIVE: CASE EVENT DATE: 20240506
